FAERS Safety Report 7682659-9 (Version None)
Quarter: 2011Q3

REPORT INFORMATION
  Report Type: 
  Country: None (occurrence: None)
  Receive Date: 20110810
  Receipt Date: 20110728
  Transmission Date: 20111222
  Serious: Yes (Other)
  Sender: FDA-Public Use
  Company Number: AUR-APL-2011-04527

PATIENT
  Age: 45 Year
  Sex: Male
  Weight: 74.09 kg

DRUGS (5)
  1. AMITRIPTYLINE HYDROCHLORIDE [Concomitant]
  2. TOPIRAMATE [Suspect]
     Indication: PRODUCT USED FOR UNKNOWN INDICATION
  3. CO-CODAMOL (PANADEINE CO) [Concomitant]
  4. LANSOPRAZOLE [Concomitant]
  5. DICLOFENAC SODIUM [Concomitant]

REACTIONS (2)
  - FURUNCLE [None]
  - RASH [None]
